FAERS Safety Report 20120861 (Version 2)
Quarter: 2022Q1

REPORT INFORMATION
  Report Type: Spontaneous
  Country: US (occurrence: US)
  Receive Date: 20211127
  Receipt Date: 20220104
  Transmission Date: 20220423
  Serious: Yes (Other)
  Sender: FDA-Public Use
  Company Number: US-UNITED THERAPEUTICS-UNT-2021-023932

PATIENT
  Age: 30 Year
  Sex: Male
  Weight: 153.74 kg

DRUGS (5)
  1. REMODULIN [Suspect]
     Active Substance: TREPROSTINIL
     Indication: Pulmonary arterial hypertension
     Dosage: UNK, CONTINUING
     Route: 058
     Dates: start: 20211116
  2. REMODULIN [Suspect]
     Active Substance: TREPROSTINIL
     Dosage: 0.036 ?G/KG, CONTINUING
     Route: 058
     Dates: start: 202111
  3. AMBRISENTAN [Concomitant]
     Active Substance: AMBRISENTAN
     Indication: Product used for unknown indication
     Dosage: UNK
     Route: 065
  4. ELIQUIS [Concomitant]
     Active Substance: APIXABAN
     Indication: Product used for unknown indication
     Dosage: UNK
     Route: 065
  5. TADALAFIL [Concomitant]
     Active Substance: TADALAFIL
     Indication: Product used for unknown indication
     Dosage: UNK
     Route: 065

REACTIONS (4)
  - Device dislocation [Recovered/Resolved]
  - Pain in extremity [Not Recovered/Not Resolved]
  - Pain in jaw [Not Recovered/Not Resolved]
  - Infusion site pain [Not Recovered/Not Resolved]

NARRATIVE: CASE EVENT DATE: 20211101
